FAERS Safety Report 21170723 (Version 5)
Quarter: 2022Q3

REPORT INFORMATION
  Report Type: Spontaneous
  Country: JP (occurrence: JP)
  Receive Date: 20220804
  Receipt Date: 20220922
  Transmission Date: 20221027
  Serious: Yes (Death, Other)
  Sender: FDA-Public Use
  Company Number: JP-MSD-M2022-30899

PATIENT
  Age: 85 Year
  Sex: Female
  Weight: 49 kg

DRUGS (12)
  1. KEYTRUDA [Suspect]
     Active Substance: PEMBROLIZUMAB
     Indication: Malignant neoplasm of renal pelvis
     Dosage: 200 MILLIGRAM, Q3W
     Route: 041
     Dates: start: 20220713, end: 20220713
  2. NIFEDIPINE [Concomitant]
     Active Substance: NIFEDIPINE
     Dosage: 40 MILLIGRAM
     Route: 048
  3. BISOPROLOL FUMARATE [Concomitant]
     Active Substance: BISOPROLOL FUMARATE
     Dosage: 2.5 MILLIGRAM
     Route: 048
  4. ATORVASTATIN CALCIUM TRIHYDRATE [Concomitant]
     Active Substance: ATORVASTATIN CALCIUM TRIHYDRATE
     Dosage: 5 MILLIGRAM
     Route: 048
  5. TRANEXAMIC ACID [Concomitant]
     Active Substance: TRANEXAMIC ACID
     Dosage: 250 MILLIGRAM
     Route: 048
  6. MAGNESIUM OXIDE [Concomitant]
     Active Substance: MAGNESIUM OXIDE
     Dosage: 500 MILLIGRAM
     Route: 048
  7. ALESION [Concomitant]
     Active Substance: EPINASTINE HYDROCHLORIDE
     Dosage: UNK
     Route: 047
  8. PIRENOXINE [Concomitant]
     Active Substance: PIRENOXINE
     Dosage: UNK
     Route: 047
  9. OXYCODONE HYDROCHLORIDE [Concomitant]
     Active Substance: OXYCODONE HYDROCHLORIDE
     Dosage: 5 MILLIGRAM
     Route: 048
     Dates: start: 20220713
  10. CELECOXIB [Concomitant]
     Active Substance: CELECOXIB
     Dosage: 100 MILLIGRAM
     Route: 048
     Dates: start: 20220714
  11. SYMPROIC [Concomitant]
     Active Substance: NALDEMEDINE
     Dosage: 0.2 MILLIGRAM
     Route: 048
     Dates: start: 20220714
  12. LINZESS [Concomitant]
     Active Substance: LINACLOTIDE
     Dosage: 0.25 MILLIGRAM
     Route: 048
     Dates: start: 20220715

REACTIONS (4)
  - Tumour lysis syndrome [Fatal]
  - Hepatitis acute [Fatal]
  - Delirium [Unknown]
  - Pruritus [Unknown]

NARRATIVE: CASE EVENT DATE: 20220714
